FAERS Safety Report 25133321 (Version 1)
Quarter: 2025Q1

REPORT INFORMATION
  Report Type: Report from Study
  Country: CA (occurrence: CA)
  Receive Date: 20250328
  Receipt Date: 20250328
  Transmission Date: 20250408
  Serious: Yes (Hospitalization)
  Sender: TAKEDA
  Company Number: CA-TAKEDA-2025TUS005177

PATIENT
  Age: 50 Year
  Sex: Female

DRUGS (25)
  1. VEDOLIZUMAB [Suspect]
     Active Substance: VEDOLIZUMAB
     Indication: Crohn^s disease
  2. VEDOLIZUMAB [Suspect]
     Active Substance: VEDOLIZUMAB
     Dosage: 300 MILLIGRAM, Q4WEEKS
     Dates: start: 20210908
  3. ENTOCORT [Concomitant]
     Active Substance: BUDESONIDE
  4. EDOXABAN TOSYLATE [Concomitant]
     Active Substance: EDOXABAN TOSYLATE
  5. BUPROPION [Concomitant]
     Active Substance: BUPROPION
  6. VALACYCLOVIR [Concomitant]
     Active Substance: VALACYCLOVIR HYDROCHLORIDE
  7. LETROZOLE [Concomitant]
     Active Substance: LETROZOLE
  8. OXAZEPAM [Concomitant]
     Active Substance: OXAZEPAM
  9. ALBUTEROL [Concomitant]
     Active Substance: ALBUTEROL
  10. PANTOPRAZOLE [Concomitant]
     Active Substance: PANTOPRAZOLE
  11. ZOPICLONE [Concomitant]
     Active Substance: ZOPICLONE
  12. SOLIFENACIN [Concomitant]
     Active Substance: SOLIFENACIN
  13. ATROVENT [Concomitant]
     Active Substance: IPRATROPIUM BROMIDE
  14. GABAPENTIN [Concomitant]
     Active Substance: GABAPENTIN
  15. BILASTINE [Concomitant]
     Active Substance: BILASTINE
  16. SYMBICORT [Concomitant]
     Active Substance: BUDESONIDE\FORMOTEROL FUMARATE DIHYDRATE
  17. ALIGN [Concomitant]
     Active Substance: BIFIDOBACTERIUM LONGUM SUBSP. INFANTIS
  18. POLYETHYLENE GLYCOL 3350 [Concomitant]
     Active Substance: POLYETHYLENE GLYCOL 3350
     Dosage: UNK UNK, QD
  19. Dulcolax [Concomitant]
  20. MOMETASONE [Concomitant]
     Active Substance: MOMETASONE
  21. CLODRONATE DISODIUM [Concomitant]
     Active Substance: CLODRONATE DISODIUM
  22. QUETIAPINE [Concomitant]
     Active Substance: QUETIAPINE
  23. FERROUS FUMARATE [Concomitant]
     Active Substance: FERROUS FUMARATE
  24. Fucidin h [Concomitant]
     Route: 061
  25. SYNTHROID [Concomitant]
     Active Substance: LEVOTHYROXINE SODIUM

REACTIONS (6)
  - Localised infection [Recovered/Resolved]
  - Fall [Not Recovered/Not Resolved]
  - Off label use [Unknown]
  - Skin abrasion [Recovered/Resolved]
  - Arthralgia [Not Recovered/Not Resolved]
  - Oedema peripheral [Not Recovered/Not Resolved]

NARRATIVE: CASE EVENT DATE: 20210908
